FAERS Safety Report 23854432 (Version 3)
Quarter: 2024Q3

REPORT INFORMATION
  Report Type: Report from Study
  Country: HN (occurrence: HN)
  Receive Date: 20240514
  Receipt Date: 20240902
  Transmission Date: 20241017
  Serious: Yes (Other)
  Sender: REGENERON
  Company Number: HN-BAYER-2024A068782

PATIENT
  Sex: Female

DRUGS (7)
  1. EYLEA [Suspect]
     Active Substance: AFLIBERCEPT
     Indication: Neovascular age-related macular degeneration
     Dosage: 2 MG, BOTH EYES, 40 MG/ML, SOLUTION FOR INJECTION
     Route: 031
     Dates: start: 20230202, end: 20230202
  2. EYLEA [Suspect]
     Active Substance: AFLIBERCEPT
     Dosage: 2 MG, BOTH EYES, 40 MG/ML, SOLUTION FOR INJECTION
     Route: 031
     Dates: start: 20230503, end: 20230503
  3. EYLEA [Suspect]
     Active Substance: AFLIBERCEPT
     Dosage: 2 MG, BOTH EYES, 40 MG/ML, SOLUTION FOR INJECTION
     Route: 031
     Dates: start: 20230803, end: 20230803
  4. EYLEA [Suspect]
     Active Substance: AFLIBERCEPT
     Dosage: 2 MG, BOTH EYES, 40 MG/ML, SOLUTION FOR INJECTION
     Route: 031
     Dates: start: 20231222, end: 20231222
  5. EYLEA [Suspect]
     Active Substance: AFLIBERCEPT
     Dosage: 2 MG, BOTH EYES, 40 MG/ML, SOLUTION FOR INJECTION
     Route: 031
     Dates: start: 20240410, end: 20240410
  6. EYLEA [Suspect]
     Active Substance: AFLIBERCEPT
     Dosage: 2 MG, BOTH EYES, 40 MG/ML, SOLUTION FOR INJECTION
     Route: 031
     Dates: start: 20240422, end: 20240422
  7. EYLEA [Suspect]
     Active Substance: AFLIBERCEPT
     Dosage: 2 MG, BOTH EYES, 40 MG/ML, SOLUTION FOR INJECTION
     Route: 031
     Dates: start: 20240814

REACTIONS (3)
  - Blindness [Not Recovered/Not Resolved]
  - Cataract [Recovering/Resolving]
  - Inappropriate schedule of product administration [Unknown]

NARRATIVE: CASE EVENT DATE: 20240422
